FAERS Safety Report 20139553 (Version 1)
Quarter: 2021Q4

REPORT INFORMATION
  Report Type: Spontaneous
  Country: IN (occurrence: IN)
  Receive Date: 20211202
  Receipt Date: 20211202
  Transmission Date: 20220303
  Serious: Yes (Other)
  Sender: FDA-Public Use
  Company Number: IN-PFIZER INC-202101630320

PATIENT
  Age: 49 Year
  Sex: Male

DRUGS (1)
  1. LORLATINIB [Suspect]
     Active Substance: LORLATINIB
     Dosage: 100 MG, 1X/DAY
     Route: 048
     Dates: start: 20210831

REACTIONS (8)
  - Electrocardiogram QT prolonged [Unknown]
  - Seizure [Recovered/Resolved]
  - Blood pressure systolic increased [Unknown]
  - Weight increased [Unknown]
  - Sinus tachycardia [Unknown]
  - Blood cholesterol abnormal [Unknown]
  - Blood triglycerides increased [Unknown]
  - Low density lipoprotein increased [Unknown]
